FAERS Safety Report 7478059-7 (Version None)
Quarter: 2011Q2

REPORT INFORMATION
  Report Type: 
  Country: None (occurrence: None)
  Receive Date: 20110511
  Receipt Date: 20110511
  Transmission Date: 20111010
  Serious: Yes (Death)
  Sender: FDA-Public Use
  Company Number: None

PATIENT
  Age: 88 Year
  Sex: Male
  Weight: 79 kg

DRUGS (10)
  1. METOPROLOL SUCCINATE [Concomitant]
  2. FOLIC ACID [Concomitant]
  3. ALBUTEROL INHALER [Concomitant]
  4. TRAVOPROST [Concomitant]
  5. TAMSULOSIN HCL [Concomitant]
  6. NIACIN [Concomitant]
  7. IPRATROPIUM BROMIDE AND ALBUTEROL SULFATE [Concomitant]
  8. FINASTERIDE [Concomitant]
  9. DABIGATRAN 75MG BOEHRINGER [Suspect]
     Indication: ATRIAL FIBRILLATION
     Dosage: 75MG BID PO
     Route: 048
     Dates: start: 20110409, end: 20110418
  10. TIOTROPIUM [Concomitant]

REACTIONS (11)
  - HYPOXIA [None]
  - CHEST X-RAY ABNORMAL [None]
  - BLOOD PRESSURE DIASTOLIC DECREASED [None]
  - HAEMORRHAGE URINARY TRACT [None]
  - CONFUSIONAL STATE [None]
  - RESTLESSNESS [None]
  - LETHARGY [None]
  - GENERAL PHYSICAL HEALTH DETERIORATION [None]
  - INTERNATIONAL NORMALISED RATIO INCREASED [None]
  - HAEMOPTYSIS [None]
  - RENAL FAILURE ACUTE [None]
